FAERS Safety Report 16286466 (Version 1)
Quarter: 2019Q2

REPORT INFORMATION
  Report Type: Spontaneous
  Country: US (occurrence: US)
  Receive Date: 20190507
  Receipt Date: 20190507
  Transmission Date: 20190711
  Serious: Yes (Life-Threatening, Hospitalization)
  Sender: FDA-Public Use
  Company Number: None

PATIENT
  Age: 41 Year
  Sex: Female
  Weight: 68.9 kg

DRUGS (2)
  1. FERRLECIT [Suspect]
     Active Substance: SODIUM FERRIC GLUCONATE COMPLEX
     Indication: ANAEMIA
     Dosage: ?          OTHER FREQUENCY:ONCE;?
     Route: 042
     Dates: start: 20190425, end: 20190425
  2. LABETALOL 100 MG ORALLY BID [Concomitant]
     Active Substance: LABETALOL HYDROCHLORIDE
     Dates: start: 20190424, end: 20190425

REACTIONS (8)
  - Rash [None]
  - Bradycardia [None]
  - Caesarean section [None]
  - Maternal use of illicit drugs [None]
  - Exposure during pregnancy [None]
  - Hypotension [None]
  - Miosis [None]
  - Amphetamines positive [None]

NARRATIVE: CASE EVENT DATE: 20190425
